FAERS Safety Report 5812305-8 (Version None)
Quarter: 2008Q3

REPORT INFORMATION
  Report Type: 
  Country: None (occurrence: None)
  Receive Date: 20080714
  Receipt Date: 20080709
  Transmission Date: 20090109
  Serious: No
  Sender: FDA-Public Use
  Company Number: FABR-1000099

PATIENT
  Age: 18 Year
  Sex: Male
  Weight: 68 kg

DRUGS (1)
  1. FABRAZYME [Suspect]
     Indication: FABRY'S DISEASE
     Dosage: 68 MG, Q2W, INTRAVENOUS
     Route: 042
     Dates: start: 20030703

REACTIONS (1)
  - PNEUMONIA PRIMARY ATYPICAL [None]
